FAERS Safety Report 7325008-8 (Version None)
Quarter: 2011Q1

REPORT INFORMATION
  Report Type: 
  Country: None (occurrence: None)
  Receive Date: 20110301
  Receipt Date: 20110223
  Transmission Date: 20110831
  Serious: Yes (Hospitalization)
  Sender: FDA-Public Use
  Company Number: US-BRISTOL-MYERS SQUIBB COMPANY-15565823

PATIENT
  Sex: Male

DRUGS (1)
  1. AVALIDE [Suspect]

REACTIONS (2)
  - ACCIDENT [None]
  - INTERVERTEBRAL DISC PROTRUSION [None]
